FAERS Safety Report 23027136 (Version 1)
Quarter: 2023Q4

REPORT INFORMATION
  Report Type: Spontaneous
  Country: US (occurrence: None)
  Receive Date: 20231003
  Receipt Date: 20231003
  Transmission Date: 20240109
  Serious: Yes (Other)
  Sender: FDA-Public Use
  Company Number: None

PATIENT
  Age: 63 Year
  Sex: Male
  Weight: 112 kg

DRUGS (3)
  1. CIPROFLOXACIN [Suspect]
     Active Substance: CIPROFLOXACIN
     Indication: Post procedural infection
     Dosage: FREQUENCY : TWICE A DAY;?
     Dates: start: 20230528, end: 20230705
  2. CIPROFLOXACIN [Suspect]
     Active Substance: CIPROFLOXACIN
     Indication: Hernia
  3. RIFAMPIN [Concomitant]
     Active Substance: RIFAMPIN
     Dates: start: 20230516, end: 20230806

REACTIONS (1)
  - Neuropathy peripheral [None]

NARRATIVE: CASE EVENT DATE: 20230705
